FAERS Safety Report 8926742 (Version 1)
Quarter: 2012Q4

REPORT INFORMATION
  Report Type: 
  Country: PH (occurrence: PH)
  Receive Date: 20121127
  Receipt Date: 20121127
  Transmission Date: 20130627
  Serious: Yes (Death)
  Sender: FDA-Public Use
  Company Number: PHHY2012PH105823

PATIENT
  Sex: Female

DRUGS (1)
  1. AFINITOR [Suspect]
     Dosage: 10 mg, Daily
     Route: 048

REACTIONS (1)
  - Death [Fatal]
